FAERS Safety Report 15242727 (Version 1)
Quarter: 2018Q3

REPORT INFORMATION
  Report Type: Spontaneous
  Country: US (occurrence: US)
  Receive Date: 20180806
  Receipt Date: 20180806
  Transmission Date: 20181010
  Serious: No
  Sender: FDA-Public Use
  Company Number: US-AMGEN-USASP2018105032

PATIENT
  Age: 50 Year
  Sex: Female

DRUGS (1)
  1. ENBREL [Suspect]
     Active Substance: ETANERCEPT
     Indication: RHEUMATOID ARTHRITIS
     Dosage: 50 MG, QWK
     Route: 065

REACTIONS (8)
  - Vision blurred [Unknown]
  - Paraesthesia [Unknown]
  - Eye pain [Unknown]
  - Weight increased [Unknown]
  - Conjunctivitis [Unknown]
  - Anxiety [Unknown]
  - Dizziness [Unknown]
  - Increased appetite [Unknown]
